FAERS Safety Report 4889619-1 (Version None)
Quarter: 2006Q1

REPORT INFORMATION
  Report Type: 
  Country: None (occurrence: None)
  Receive Date: 20060124
  Receipt Date: 20060119
  Transmission Date: 20060701
  Serious: Yes (Other)
  Sender: FDA-Public Use
  Company Number: US-GLAXOSMITHKLINE-A0590168A

PATIENT
  Sex: Male

DRUGS (1)
  1. PAXIL CR [Suspect]
     Indication: OBSESSIVE-COMPULSIVE DISORDER
     Dosage: 12.5MG PER DAY
     Route: 048

REACTIONS (6)
  - CONFUSIONAL STATE [None]
  - DEPRESSION [None]
  - DRUG ADMINISTRATION ERROR [None]
  - EMOTIONAL DISTRESS [None]
  - HOSTILITY [None]
  - SELF MUTILATION [None]
